FAERS Safety Report 5960190-6 (Version None)
Quarter: 2008Q4

REPORT INFORMATION
  Report Type: 
  Country: None (occurrence: None)
  Receive Date: 20081120
  Receipt Date: 20081113
  Transmission Date: 20090506
  Serious: Yes (Other)
  Sender: FDA-Public Use
  Company Number: CA-ASTRAZENECA-2008UW22045

PATIENT
  Age: 14 Year
  Sex: Male

DRUGS (3)
  1. SYMBICORT [Suspect]
     Indication: ASTHMA
     Dosage: 2 PUFFS
     Route: 055
     Dates: start: 20080523
  2. VENTOLIN [Concomitant]
  3. FLOVENT [Concomitant]

REACTIONS (2)
  - DRUG INEFFECTIVE [None]
  - MALAISE [None]
